FAERS Safety Report 7015635-X (Version None)
Quarter: 2010Q3

REPORT INFORMATION
  Report Type: 
  Country: None (occurrence: None)
  Receive Date: 20100927
  Receipt Date: 20100916
  Transmission Date: 20110219
  Serious: Yes (Hospitalization)
  Sender: FDA-Public Use
  Company Number: US-BAYER-201020132BCC

PATIENT
  Age: 75 Year
  Sex: Male
  Weight: 82 kg

DRUGS (3)
  1. ASPIRIN [Suspect]
     Indication: CARDIAC DISORDER
     Route: 065
     Dates: end: 20091008
  2. PLAVIX [Suspect]
     Indication: POOR PERIPHERAL CIRCULATION
     Route: 048
     Dates: end: 20091008
  3. CELEBREX [Suspect]
     Indication: ARTHRITIS
     Route: 065
     Dates: end: 20091008

REACTIONS (7)
  - DUODENAL ULCER HAEMORRHAGE [None]
  - GASTROINTESTINAL HAEMORRHAGE [None]
  - HAEMATOCRIT DECREASED [None]
  - HAEMOGLOBIN DECREASED [None]
  - HAEMORRHAGE [None]
  - HYPOTENSION [None]
  - SYNCOPE [None]
